FAERS Safety Report 8130059-X (Version None)
Quarter: 2012Q1

REPORT INFORMATION
  Report Type: 
  Country: None (occurrence: None)
  Receive Date: 20120210
  Receipt Date: 20120130
  Transmission Date: 20120608
  Serious: Yes (Other)
  Sender: FDA-Public Use
  Company Number: CHPA2012US002416

PATIENT
  Sex: Female

DRUGS (2)
  1. EXCEDRIN TENSION HEADACHE CAPLETS [Suspect]
     Dosage: UNK DF, UNK
     Route: 048
  2. EXCEDRIN TENSION HEADACHE CAPLETS [Suspect]
     Indication: PAIN
     Dosage: UNK DF, UNK
     Route: 048

REACTIONS (4)
  - ARTHRITIS [None]
  - PAIN IN EXTREMITY [None]
  - ARTHROPATHY [None]
  - MOBILITY DECREASED [None]
